FAERS Safety Report 13891682 (Version 1)
Quarter: 2017Q3

REPORT INFORMATION
  Report Type: Spontaneous
  Country: RU (occurrence: RU)
  Receive Date: 20170822
  Receipt Date: 20170822
  Transmission Date: 20171127
  Serious: Yes (Other)
  Sender: FDA-Public Use
  Company Number: RU-ASTRAZENECA-2017SE85170

PATIENT
  Age: 80 Year
  Sex: Female
  Weight: 72 kg

DRUGS (9)
  1. DIUVER [Concomitant]
     Active Substance: TORSEMIDE
     Dosage: 5.0MG UNKNOWN
  2. ROSUCARD [Concomitant]
     Active Substance: ROSUVASTATIN CALCIUM
  3. CONCOR [Concomitant]
     Active Substance: BISOPROLOL FUMARATE
  4. DIUVER [Concomitant]
     Active Substance: TORSEMIDE
     Dosage: 5.0MG UNKNOWN
  5. DIUVER [Concomitant]
     Active Substance: TORSEMIDE
     Dosage: 10.0MG UNKNOWN
  6. NOLPAZA [Concomitant]
     Active Substance: PANTOPRAZOLE SODIUM
  7. BRILINTA [Suspect]
     Active Substance: TICAGRELOR
     Indication: MYOCARDIAL INFARCTION
     Route: 048
     Dates: start: 20170318
  8. PERINEVA [Concomitant]
     Active Substance: PERINDOPRIL ERBUMINE
  9. CARDIOMAGNYL [Concomitant]
     Active Substance: ASPIRIN\MAGNESIUM HYDROXIDE

REACTIONS (2)
  - Cholelithiasis [Unknown]
  - Dyspnoea [Not Recovered/Not Resolved]

NARRATIVE: CASE EVENT DATE: 201706
